FAERS Safety Report 14502827 (Version 3)
Quarter: 2018Q1

REPORT INFORMATION
  Report Type: Spontaneous
  Country: NL (occurrence: NL)
  Receive Date: 20180208
  Receipt Date: 20180315
  Transmission Date: 20180509
  Serious: Yes (Hospitalization)
  Sender: FDA-Public Use
  Company Number: NL-BIOGEN-2018BI00520819

PATIENT
  Age: 68 Year
  Sex: Female

DRUGS (5)
  1. BACLOFEN. [Concomitant]
     Active Substance: BACLOFEN
     Indication: PRODUCT USED FOR UNKNOWN INDICATION
     Route: 065
  2. TECFIDERA [Suspect]
     Active Substance: DIMETHYL FUMARATE
     Indication: MULTIPLE SCLEROSIS
     Route: 065
     Dates: start: 2014
  3. FAMPYRA [Suspect]
     Active Substance: DALFAMPRIDINE
     Indication: GAIT DISTURBANCE
     Route: 048
     Dates: start: 201606, end: 20180123
  4. OMEPRAZOLE. [Concomitant]
     Active Substance: OMEPRAZOLE
     Indication: PRODUCT USED FOR UNKNOWN INDICATION
     Route: 065
  5. PAROXETINE. [Concomitant]
     Active Substance: PAROXETINE
     Indication: PRODUCT USED FOR UNKNOWN INDICATION
     Route: 065

REACTIONS (3)
  - Urinary tract infection [Unknown]
  - Secondary progressive multiple sclerosis [Unknown]
  - Generalised tonic-clonic seizure [Recovered/Resolved with Sequelae]

NARRATIVE: CASE EVENT DATE: 20180122
